FAERS Safety Report 11942862 (Version 1)
Quarter: 2016Q1

REPORT INFORMATION
  Report Type: Spontaneous
  Country: US (occurrence: US)
  Receive Date: 20160125
  Receipt Date: 20160125
  Transmission Date: 20160526
  Serious: No
  Sender: FDA-Public Use
  Company Number: US-UNITED THERAPEUTICS-UNT-2015-008907

PATIENT
  Age: 39 Year
  Sex: Female
  Weight: 77.55 kg

DRUGS (4)
  1. REMODULIN [Suspect]
     Active Substance: TREPROSTINIL
     Dosage: 0.052 ?G/KG/MIN, CONTINUING
     Route: 058
  2. REMODULIN [Suspect]
     Active Substance: TREPROSTINIL
     Indication: PULMONARY ARTERIAL HYPERTENSION
     Dosage: 0.002 ?G/KG/MIN, CONTINUING
     Route: 058
     Dates: start: 20150715
  3. REVATIO [Concomitant]
     Active Substance: SILDENAFIL CITRATE
     Indication: PRODUCT USED FOR UNKNOWN INDICATION
  4. ADCIRCA [Concomitant]
     Active Substance: TADALAFIL
     Indication: PRODUCT USED FOR UNKNOWN INDICATION

REACTIONS (19)
  - Gastrooesophageal reflux disease [Unknown]
  - Abdominal pain [Unknown]
  - Diarrhoea [Unknown]
  - Ocular discomfort [Unknown]
  - Myalgia [Unknown]
  - Insomnia [Unknown]
  - Pain in jaw [Unknown]
  - Paranasal sinus discomfort [Unknown]
  - Headache [Unknown]
  - Decreased appetite [Unknown]
  - Migraine [Unknown]
  - Vomiting [Unknown]
  - Fatigue [Unknown]
  - Infusion site pain [Unknown]
  - Pregnancy [Unknown]
  - Nausea [Unknown]
  - Dyspepsia [Unknown]
  - Pain in extremity [Unknown]
  - Dizziness [Unknown]

NARRATIVE: CASE EVENT DATE: 201507
